FAERS Safety Report 19311247 (Version 2)
Quarter: 2022Q3

REPORT INFORMATION
  Report Type: Spontaneous
  Country: JP (occurrence: JP)
  Receive Date: 20210527
  Receipt Date: 20220714
  Transmission Date: 20221026
  Serious: Yes (Hospitalization, Other)
  Sender: FDA-Public Use
  Company Number: JP-GLAXOSMITHKLINE-JP2021JPN107600

PATIENT

DRUGS (11)
  1. VALTREX [Suspect]
     Active Substance: VALACYCLOVIR HYDROCHLORIDE
     Indication: Herpes zoster
     Dosage: 1000 MG, TID
     Route: 048
     Dates: start: 20201216, end: 20201218
  2. INLYTA [Suspect]
     Active Substance: AXITINIB
     Indication: Renal cell carcinoma
     Dosage: 5 MG, BID
     Route: 048
     Dates: start: 20200710, end: 20200731
  3. INLYTA [Suspect]
     Active Substance: AXITINIB
     Dosage: 10 MG, BID
     Route: 048
     Dates: start: 20200801, end: 20201018
  4. INLYTA [Suspect]
     Active Substance: AXITINIB
     Dosage: 5 MG, BID
     Route: 048
     Dates: start: 20201106, end: 20201218
  5. INLYTA [Suspect]
     Active Substance: AXITINIB
     Dosage: 10 MG
     Route: 048
     Dates: start: 20210108
  6. URSODEOXYCHOLIC ACID TABLETS [Concomitant]
     Dosage: 100 MG
  7. NEXIUM [Concomitant]
     Active Substance: ESOMEPRAZOLE MAGNESIUM
     Dosage: 20 MG
  8. LOXOPROFEN SODIUM [Concomitant]
     Active Substance: LOXOPROFEN SODIUM
     Dosage: UNK
  9. MUCOSTA TABLETS [Concomitant]
     Dosage: UNK
  10. AMLODIN OD TABLETS [Concomitant]
     Dosage: 5 MG
  11. LEVOTHYROXINE SODIUM [Concomitant]
     Active Substance: LEVOTHYROXINE SODIUM
     Dosage: 25 ?G

REACTIONS (4)
  - Renal impairment [Recovered/Resolved]
  - Renal failure [Unknown]
  - Dehydration [Unknown]
  - Overdose [Unknown]

NARRATIVE: CASE EVENT DATE: 20201218
